FAERS Safety Report 7421703-0 (Version None)
Quarter: 2011Q2

REPORT INFORMATION
  Report Type: 
  Country: None (occurrence: None)
  Receive Date: 20110418
  Receipt Date: 20110413
  Transmission Date: 20111010
  Serious: Yes (Death, Life-Threatening, Hospitalization)
  Sender: FDA-Public Use
  Company Number: BE-PFIZER INC-2010139048

PATIENT
  Age: 62 Year
  Sex: Male
  Weight: 78 kg

DRUGS (10)
  1. NEORAL [Suspect]
     Indication: PROPHYLAXIS AGAINST TRANSPLANT REJECTION
     Dosage: 75 MG, 2X/DAY
     Route: 048
     Dates: start: 20070901
  2. EMCONCOR [Concomitant]
     Indication: HYPERTENSION
     Dosage: 5 MG, 1X/DAY
     Route: 048
  3. NOVORAPID [Concomitant]
     Indication: DIABETES MELLITUS
     Dosage: UNK
     Route: 058
  4. CRESTOR [Concomitant]
     Indication: HYPERCHOLESTEROLAEMIA
     Dosage: 10 MG, 1X/DAY
     Route: 048
     Dates: start: 20090526
  5. LANTUS [Concomitant]
     Indication: DIABETES MELLITUS
     Dosage: UNK
     Route: 058
  6. MEDROL [Suspect]
     Indication: IMMUNOSUPPRESSION
     Dosage: 2 MG, 1X/DAY
     Route: 048
  7. CELLCEPT [Suspect]
     Indication: IMMUNOSUPPRESSION
     Dosage: 500 MG, 2X/DAY
     Route: 048
     Dates: start: 20070901
  8. MAGNESIUM [Concomitant]
     Indication: SUPPLEMENTATION THERAPY
     Dosage: UNK
     Route: 048
  9. AMLODIPINE BESYLATE [Concomitant]
     Indication: HYPERTENSION
     Dosage: 10 MG, 1X/DAY
     Route: 048
     Dates: start: 20070901
  10. EZETIMIBE [Concomitant]
     Indication: HYPERCHOLESTEROLAEMIA
     Dosage: 10 MG, 1X/DAY
     Route: 048
     Dates: start: 20090827

REACTIONS (1)
  - SEPSIS [None]
